FAERS Safety Report 6224143-5 (Version None)
Quarter: 2009Q2

REPORT INFORMATION
  Report Type: 
  Country: None (occurrence: None)
  Receive Date: 20090612
  Receipt Date: 20090605
  Transmission Date: 20091009
  Serious: Yes (Other)
  Sender: FDA-Public Use
  Company Number: US-JNJCH-2009015742

PATIENT
  Age: 30 Year
  Sex: Male
  Weight: 74.8 kg

DRUGS (1)
  1. BENGAY ULTRA STRENGTH PATCH [Suspect]
     Indication: MUSCULOSKELETAL PAIN
     Dosage: TEXT:ONE PATCH ONCE
     Route: 061
     Dates: start: 20090529, end: 20090529

REACTIONS (3)
  - APPLICATION SITE ERYTHEMA [None]
  - BLISTER [None]
  - URTICARIA [None]
